FAERS Safety Report 22302370 (Version 1)
Quarter: 2023Q2

REPORT INFORMATION
  Report Type: Report from Study
  Country: MX (occurrence: MX)
  Receive Date: 20230510
  Receipt Date: 20230510
  Transmission Date: 20230722
  Serious: Yes (Death)
  Sender: FDA-Public Use
  Company Number: MX-ABBVIE-4760581

PATIENT
  Sex: Male
  Weight: 70 kg

DRUGS (1)
  1. VENCLEXTA [Suspect]
     Active Substance: VENETOCLAX
     Indication: Acute myeloid leukaemia
     Dosage: 2023 END DATE ?FORM STRENGTH: 100 MG
     Route: 048
     Dates: start: 202304

REACTIONS (2)
  - Death [Fatal]
  - Drug ineffective [Unknown]
